FAERS Safety Report 24754538 (Version 1)
Quarter: 2024Q4

REPORT INFORMATION
  Report Type: Spontaneous
  Country: CH (occurrence: CH)
  Receive Date: 20241219
  Receipt Date: 20241219
  Transmission Date: 20250115
  Serious: Yes (Other)
  Sender: APELLIS PHARMACEUTICALS
  Company Number: CH-BIOVITRUM-2024-CH-014199

PATIENT
  Weight: 63.6 kg

DRUGS (13)
  1. PEGCETACOPLAN [Suspect]
     Active Substance: PEGCETACOPLAN
     Indication: C3 glomerulopathy
     Dosage: TWICE WEEKLY ON DAY 1 AND DAY 4 S.C. VIA?SYRINGE INFUSION PUMP
     Route: 058
     Dates: start: 20230803
  2. ARANESP [Concomitant]
     Active Substance: DARBEPOETIN ALFA
     Indication: Product used for unknown indication
     Dosage: 20 MICROG INJECTION SUBCUTANEOUSLY EVERY?2 WEEKS
     Route: 058
  3. CANDESARTAN CILEXETIL [Concomitant]
     Active Substance: CANDESARTAN CILEXETIL
     Indication: Hypertension
     Dosage: 2-0-0-2
     Route: 048
  4. CARVEDILOL [Concomitant]
     Active Substance: CARVEDILOL
     Indication: Hypertension
     Dosage: 1-1-1-0
     Route: 048
  5. TORSEMIDE [Concomitant]
     Active Substance: TORSEMIDE
     Indication: Hypertension
     Dosage: 1-0-0-0
     Route: 048
  6. LERCANIDIPINE [Concomitant]
     Active Substance: LERCANIDIPINE
     Indication: Hypertension
     Route: 048
     Dates: start: 20240725
  7. LERCANIDIPINE [Concomitant]
     Active Substance: LERCANIDIPINE
     Dosage: 10 MG ORALLY 0-0-1-0
     Route: 048
     Dates: start: 20230724
  8. PRALUENT [Concomitant]
     Active Substance: ALIROCUMAB
     Indication: Hypercholesterolaemia
     Dosage: PREFILLED PEN 150 MG/ML S.C. EVERY 14 DAYS
     Route: 058
  9. BETAHISTINE [Concomitant]
     Active Substance: BETAHISTINE
     Indication: Meniere^s disease
     Dosage: 4 MG ORALLY 2-0-2-0
     Route: 048
  10. CARBIMAZOLE [Concomitant]
     Active Substance: CARBIMAZOLE
     Indication: Graves^ disease
     Dates: start: 202103, end: 202303
  11. VITAMIN D [Concomitant]
     Active Substance: VITAMIN D NOS
     Indication: Product used for unknown indication
     Dosage: 800 UNITS/DAY ORALLY 3 TIMES/WEEK
     Route: 048
  12. TRAZODONE HYDROCHLORIDE [Concomitant]
     Active Substance: TRAZODONE HYDROCHLORIDE
     Indication: Product used for unknown indication
     Dosage: 150 MG EXTENDED-RELEASE P.O. 0-0-0-1/3
     Route: 048
  13. NIFEDIPINE [Concomitant]
     Active Substance: NIFEDIPINE
     Indication: Blood pressure measurement
     Dosage: 20 MG EXTENDED RELEASE ORALLY AS NEEDED IF BLOOD PRESSURE GREATER THAN 160 MMHG
     Route: 048

REACTIONS (4)
  - Disease progression [Unknown]
  - Off label use [Unknown]
  - C3 glomerulopathy [Unknown]
  - Biopsy kidney abnormal [Not Recovered/Not Resolved]

NARRATIVE: CASE EVENT DATE: 20240919
